FAERS Safety Report 8820433 (Version 1)
Quarter: 2012Q4

REPORT INFORMATION
  Report Type: 
  Country: US (occurrence: US)
  Receive Date: 20121002
  Receipt Date: 20121002
  Transmission Date: 20130627
  Serious: No
  Sender: FDA-Public Use
  Company Number: US-009507513-1209USA007876

PATIENT
  Age: 18 Year
  Sex: Female

DRUGS (2)
  1. NEXPLANON [Suspect]
     Indication: CONTRACEPTION
     Dosage: UNK
     Dates: start: 20120628
  2. NEXPLANON [Suspect]
     Dosage: UNK
     Dates: start: 20120901

REACTIONS (2)
  - Device expulsion [Unknown]
  - No adverse event [Unknown]
